FAERS Safety Report 5615526-2 (Version None)
Quarter: 2008Q1

REPORT INFORMATION
  Report Type: 
  Country: None (occurrence: None)
  Receive Date: 20080204
  Receipt Date: 20080204
  Transmission Date: 20080703
  Serious: Yes (Hospitalization)
  Sender: FDA-Public Use
  Company Number: None

PATIENT
  Sex: Male
  Weight: 60.3 kg

DRUGS (39)
  1. CYTARABINE [Suspect]
     Dosage: 2822 MG
  2. DAUNORUBICIN HCL [Suspect]
     Dosage: 258 MG
  3. ETOPOSIDE [Suspect]
     Dosage: 860 MG
  4. ACETAMINOPHEN [Concomitant]
  5. ALBUMIN HUMAN (ALBUMIN 25%) [Concomitant]
  6. CALCIUM CHLORIDE [Concomitant]
  7. DOPAMINE HCL [Concomitant]
  8. EPINEPHRINE DRIP [Concomitant]
  9. FENTANYL CONTINUOUS DRIP [Concomitant]
  10. FILGRASTIM [Concomitant]
  11. FLUCONAZOLE [Concomitant]
  12. FUROSEMIDE [Concomitant]
  13. HALOPERIDOL (HALDOL) [Concomitant]
  14. HEPARIN [Concomitant]
  15. HYDROMORPHONE DRIP [Concomitant]
  16. INSULIN [Concomitant]
  17. KETAMINE HCL [Concomitant]
  18. KETAMINE DRIP [Concomitant]
  19. MEPERIDINE [Concomitant]
  20. MEROPENEM [Concomitant]
  21. METHYLPREDNISOLONE (SOLU-MEDROL) [Concomitant]
  22. MICAFUNGIN [Concomitant]
  23. MIDAZOLAM CONTINUOUS DRIP [Concomitant]
  24. MILRINONE DRIP [Concomitant]
  25. PHENOBARBITAL TAB [Concomitant]
  26. PHYTONADIONE (VITAMIN K) [Concomitant]
  27. POTASSIUM CHLORIDE [Concomitant]
  28. POTASSIUM CHLORIDE (KCI RIDER) [Concomitant]
  29. PROPOFOL [Concomitant]
  30. ROCURONIUM BROMIDE [Concomitant]
  31. SODIUM BICARBONATE [Concomitant]
  32. KAYEXALATE [Concomitant]
  33. SULFAMETHOXAZOLE-TRIMETHOPRIM (TRIMETHOPRIM-SULFAMRTHOXAZOLE) [Concomitant]
  34. VANCOMYCIN [Concomitant]
  35. VASOPRESSIN DRIP [Concomitant]
  36. VECURONIUM DRIP [Concomitant]
  37. BUMEX [Concomitant]
  38. CALCIUM CHLORIDE [Concomitant]
  39. CIPROFLOXACIN [Concomitant]

REACTIONS (14)
  - ABDOMINAL DISTENSION [None]
  - ACUTE RESPIRATORY DISTRESS SYNDROME [None]
  - BLOOD CULTURE POSITIVE [None]
  - CARDIOMEGALY [None]
  - HAEMODYNAMIC INSTABILITY [None]
  - LUNG CONSOLIDATION [None]
  - LUNG INFILTRATION [None]
  - MULTI-ORGAN FAILURE [None]
  - NEUTROPENIA [None]
  - PLEURAL EFFUSION [None]
  - PYREXIA [None]
  - STREPTOCOCCAL INFECTION [None]
  - SUBARACHNOID HAEMORRHAGE [None]
  - VENTRICULAR DYSFUNCTION [None]
